FAERS Safety Report 4603060-8 (Version None)
Quarter: 2005Q1

REPORT INFORMATION
  Report Type: 
  Country: None (occurrence: None)
  Receive Date: 20050307
  Receipt Date: 20050217
  Transmission Date: 20050727
  Serious: Yes (Other)
  Sender: FDA-Public Use
  Company Number: 210824

PATIENT
  Age: 56 Year
  Sex: Male
  Weight: 64.5 kg

DRUGS (4)
  1. HERCEPTIN [Suspect]
     Indication: BREAST CANCER METASTATIC
     Dosage: SEE IMAGE
     Route: 042
     Dates: start: 20040401, end: 20040401
  2. HERCEPTIN [Suspect]
     Indication: BREAST CANCER METASTATIC
     Dosage: SEE IMAGE
     Route: 042
     Dates: start: 20040408, end: 20041118
  3. EPIRUBICIN [Suspect]
     Indication: BREAST CANCER METASTATIC
     Dosage: 60 MG/M2 Q3W, INTRAVENOUS
     Route: 042
     Dates: start: 20040401, end: 20040715
  4. CYCLOFOSFAMIDE (CYCLOPHOSPHAMIDE) [Suspect]
     Indication: BREAST CANCER METASTATIC
     Dosage: 600 MG/M2, Q3W, INTRAVENOUS
     Route: 042
     Dates: start: 20040401, end: 20040715

REACTIONS (11)
  - AORTIC VALVE INCOMPETENCE [None]
  - CARDIAC DISORDER [None]
  - CARDIAC VALVE DISEASE [None]
  - DYSPNOEA [None]
  - DYSPNOEA EXERTIONAL [None]
  - EJECTION FRACTION DECREASED [None]
  - ELECTROCARDIOGRAM T WAVE ABNORMAL [None]
  - HYPOKINESIA [None]
  - MITRAL VALVE INCOMPETENCE [None]
  - PALPITATIONS [None]
  - TACHYCARDIA [None]
